FAERS Safety Report 17405765 (Version 1)
Quarter: 2020Q1

REPORT INFORMATION
  Report Type: Spontaneous
  Country: US (occurrence: US)
  Receive Date: 20200212
  Receipt Date: 20200212
  Transmission Date: 20200409
  Serious: No
  Sender: FDA-Public Use
  Company Number: US-AUROBINDO-AUR-APL-2019-014153

PATIENT
  Sex: Male

DRUGS (1)
  1. AMOXICILLIN POWDER FOR ORAL SUSPENSION USP 400 MG/5 ML [Suspect]
     Active Substance: AMOXICILLIN
     Indication: PRODUCT USED FOR UNKNOWN INDICATION
     Dosage: UNK, 1 DOSE
     Route: 065

REACTIONS (1)
  - Vomiting [Unknown]
